FAERS Safety Report 18361852 (Version 1)
Quarter: 2020Q4

REPORT INFORMATION
  Report Type: Spontaneous
  Country: US (occurrence: US)
  Receive Date: 20201008
  Receipt Date: 20201008
  Transmission Date: 20210114
  Serious: Yes (Other)
  Sender: FDA-Public Use
  Company Number: US-FRESENIUS KABI-FK202010399

PATIENT
  Age: 56 Year
  Sex: Female

DRUGS (2)
  1. AMIODARONE HCL (MANUFACTURER UNKNOWN) [Suspect]
     Active Substance: AMIODARONE HYDROCHLORIDE
     Indication: SINUS NODE DYSFUNCTION
     Dosage: UNKNOWN
     Route: 065
  2. METOPROLOL INJECTION (MANUFACTURER UNKNOWN) [Suspect]
     Active Substance: METOPROLOL
     Indication: SINUS NODE DYSFUNCTION
     Dosage: LOW-DOSE
     Route: 065

REACTIONS (2)
  - Condition aggravated [Recovered/Resolved]
  - Sinus node dysfunction [Recovered/Resolved]
